FAERS Safety Report 8101854-8 (Version None)
Quarter: 2012Q1

REPORT INFORMATION
  Report Type: 
  Country: None (occurrence: None)
  Receive Date: 20120131
  Receipt Date: 20120123
  Transmission Date: 20120608
  Serious: Yes (Hospitalization)
  Sender: FDA-Public Use
  Company Number: FR-PFIZER INC-FR-WYE-G05740810

PATIENT
  Age: 65 Year
  Sex: Male

DRUGS (4)
  1. PREDNISONE TAB [Suspect]
     Indication: PROSTATE CANCER
     Dosage: 5 MG, 2X/DAY
     Route: 048
     Dates: start: 20091212, end: 20100303
  2. IBUPROFEN (ADVIL) [Suspect]
     Indication: BURSITIS
     Dosage: UNK
     Dates: end: 20100311
  3. SUNITINIB MALATE [Suspect]
     Indication: PROSTATE CANCER
     Dosage: 37.5 MG, 1X/DAY
     Route: 048
     Dates: start: 20091212, end: 20100303
  4. IBUPROFEN (ADVIL) [Suspect]
     Indication: PELVIC PAIN
     Dosage: UNK
     Route: 048
     Dates: start: 20100221, end: 20100305

REACTIONS (1)
  - RENAL FAILURE ACUTE [None]
